FAERS Safety Report 8264602-7 (Version None)
Quarter: 2012Q2

REPORT INFORMATION
  Report Type: 
  Country: None (occurrence: None)
  Receive Date: 20120403
  Receipt Date: 20120326
  Transmission Date: 20120825
  Serious: Yes (Hospitalization, Disabling, Other)
  Sender: FDA-Public Use
  Company Number: 2010MA003740

PATIENT
  Sex: Female
  Weight: 78.0187 kg

DRUGS (57)
  1. CARAFATE [Concomitant]
  2. ASPIRIN [Concomitant]
  3. LOVAZA [Concomitant]
  4. MECLIZINE [Concomitant]
  5. MIRTAZAPINE [Concomitant]
  6. PROMETHAZINE [Concomitant]
  7. TORADOL [Concomitant]
  8. TRAMADOL HCL [Concomitant]
  9. BUSPIRONE HCL [Concomitant]
  10. CIPROFLOXACIN HYDROCHLORIDE [Concomitant]
  11. FLUOXETINE [Concomitant]
  12. MELOXICAM [Concomitant]
  13. PANTOPRAZOLE [Concomitant]
  14. SIMVASTATIN [Concomitant]
  15. SYNTHROID [Concomitant]
  16. COGENTIN [Concomitant]
  17. IBUPROFEN [Concomitant]
  18. LEVOTHYROXINE SODIUM [Concomitant]
  19. NEXIUM [Concomitant]
  20. PREVACID [Concomitant]
  21. PROPOXYPHENE HCL AND ACETAMINOPHEN [Concomitant]
  22. VYTORIN [Concomitant]
  23. ZESTORETIC [Concomitant]
  24. ANTIVERT [Concomitant]
  25. PROZAC [Concomitant]
  26. RHINOCORT [Concomitant]
  27. TALACEN [Concomitant]
  28. ZETIA [Concomitant]
  29. ACETAMINOPHEN [Concomitant]
  30. ALLEGRA [Concomitant]
  31. AZITHROMYCIN [Concomitant]
  32. DIPHENOXYLATE HCL + ATROPINE SULFATE [Concomitant]
  33. FLONASE [Concomitant]
  34. HYZAAR [Concomitant]
  35. LEVOTHROID [Concomitant]
  36. LORTAB [Concomitant]
  37. VITAMIN D [Concomitant]
  38. VITAMIN D2 [Concomitant]
  39. BENZTROPINE MESYLATE [Concomitant]
  40. DARVOCET [Concomitant]
  41. DIOVAN [Concomitant]
  42. ENOXAPARIN [Concomitant]
  43. LISINOPRIL [Concomitant]
  44. TUSSIONEX [Concomitant]
  45. METOCLOPRAMIDE [Suspect]
     Indication: GASTROOESOPHAGEAL REFLUX DISEASE
     Dosage: 10 MG;Q4-6 HRS PRN;PO
     Route: 048
     Dates: start: 20050202, end: 20090730
  46. METOCLOPRAMIDE [Suspect]
     Indication: NAUSEA
     Dosage: 10 MG;Q4-6 HRS PRN;PO
     Route: 048
     Dates: start: 20050202, end: 20090730
  47. BENZTROPINE MESYLATE [Concomitant]
  48. CALCIUM CARBONATE [Concomitant]
  49. CRESTOR [Concomitant]
  50. PROMETHEGAN [Concomitant]
  51. SULFAMETHOXAZOLE AND TRIMETHOPRIM [Concomitant]
  52. ZOFRAN [Concomitant]
  53. AMBIEN [Concomitant]
  54. ATENOLOL [Concomitant]
  55. EVISTA [Concomitant]
  56. PHENERGAN SUPPOSITORY [Concomitant]
  57. ROZEREM [Concomitant]

REACTIONS (59)
  - MOVEMENT DISORDER [None]
  - NAUSEA [None]
  - ABDOMINAL PAIN [None]
  - ORTHOSTATIC HYPOTENSION [None]
  - ASTHENIA [None]
  - RESTLESSNESS [None]
  - TRANSIENT ISCHAEMIC ATTACK [None]
  - DYSTONIA [None]
  - ATRIOVENTRICULAR BLOCK FIRST DEGREE [None]
  - CEREBRAL VENTRICLE DILATATION [None]
  - PERIVENTRICULAR LEUKOMALACIA [None]
  - ABDOMINAL PAIN UPPER [None]
  - SYNCOPE [None]
  - CONVULSION [None]
  - MUSCULOSKELETAL STIFFNESS [None]
  - EXTRAPYRAMIDAL DISORDER [None]
  - ECONOMIC PROBLEM [None]
  - DEAFNESS [None]
  - CLUMSINESS [None]
  - CONFUSIONAL STATE [None]
  - TREMOR [None]
  - PERSONALITY CHANGE [None]
  - HIATUS HERNIA [None]
  - DECREASED APPETITE [None]
  - HYPERLIPIDAEMIA [None]
  - FALL [None]
  - PRESYNCOPE [None]
  - RASH [None]
  - LOSS OF CONSCIOUSNESS [None]
  - TARDIVE DYSKINESIA [None]
  - BACK PAIN [None]
  - VERTIGO [None]
  - LETHARGY [None]
  - FLUSHING [None]
  - HYPERCHOLESTEROLAEMIA [None]
  - HERNIA HIATUS REPAIR [None]
  - ANXIETY [None]
  - MOOD ALTERED [None]
  - SPINAL OSTEOARTHRITIS [None]
  - BLOOD PRESSURE INCREASED [None]
  - HYPERTENSION [None]
  - GASTROOESOPHAGEAL REFLUX DISEASE [None]
  - URINARY TRACT INFECTION [None]
  - DEPRESSION [None]
  - BALANCE DISORDER [None]
  - ABNORMAL BEHAVIOUR [None]
  - INCORRECT DRUG ADMINISTRATION DURATION [None]
  - HYPOTHYROIDISM [None]
  - OESOPHAGEAL STENOSIS [None]
  - DIARRHOEA [None]
  - DIZZINESS [None]
  - DIPLOPIA [None]
  - MEMORY IMPAIRMENT [None]
  - GAIT DISTURBANCE [None]
  - HYPERTONIA [None]
  - FATIGUE [None]
  - WEIGHT INCREASED [None]
  - SINUS BRADYCARDIA [None]
  - CEREBRAL MICROANGIOPATHY [None]
